FAERS Safety Report 20314225 (Version 2)
Quarter: 2022Q1

REPORT INFORMATION
  Report Type: Spontaneous
  Country: US (occurrence: US)
  Receive Date: 20220109
  Receipt Date: 20220114
  Transmission Date: 20220423
  Serious: No
  Sender: FDA-Public Use
  Company Number: US-SANOFI-00918638

PATIENT
  Age: 73 Year
  Sex: Male

DRUGS (1)
  1. DUPIXENT [Suspect]
     Active Substance: DUPILUMAB
     Indication: Rash
     Dosage: UNK
     Dates: start: 20211228, end: 20211228

REACTIONS (8)
  - Hypoaesthesia [Unknown]
  - Hypoaesthesia oral [Unknown]
  - Dysphagia [Unknown]
  - Pain [Unknown]
  - Back pain [Unknown]
  - Rash [Unknown]
  - Hypersensitivity [Unknown]
  - Product use in unapproved indication [Unknown]

NARRATIVE: CASE EVENT DATE: 20211229
